FAERS Safety Report 20325774 (Version 6)
Quarter: 2022Q2

REPORT INFORMATION
  Report Type: Report from Study
  Country: KR (occurrence: KR)
  Receive Date: 20220112
  Receipt Date: 20220519
  Transmission Date: 20220721
  Serious: Yes (Hospitalization, Other)
  Sender: FDA-Public Use
  Company Number: KR-ABBVIE-22K-090-4229491-00

PATIENT
  Age: 64 Year
  Sex: Male

DRUGS (8)
  1. RINVOQ [Suspect]
     Active Substance: UPADACITINIB
     Indication: Rheumatoid arthritis
     Route: 048
     Dates: start: 20211004, end: 20220104
  2. BIOTOP S [Concomitant]
     Indication: Product used for unknown indication
     Route: 048
     Dates: start: 20210405, end: 20211227
  3. CALCIUM CARBONATE\CHOLECALCIFEROL [Concomitant]
     Active Substance: CALCIUM CARBONATE\CHOLECALCIFEROL
     Indication: Osteoporosis
     Route: 048
     Dates: start: 20210405, end: 20211227
  4. FOLIC ACID [Concomitant]
     Active Substance: FOLIC ACID
     Indication: Product used for unknown indication
     Dosage: SINIL 1MG
     Route: 048
     Dates: start: 20210329, end: 20211227
  5. METHOTREXATE [Concomitant]
     Active Substance: METHOTREXATE
     Indication: Osteoporosis
     Route: 048
     Dates: start: 20210329, end: 20211227
  6. HALOXIN [Concomitant]
     Indication: Product used for unknown indication
     Dosage: 200 MG
     Route: 048
     Dates: start: 20210329, end: 20211227
  7. REBAMIPIDE [Concomitant]
     Active Substance: REBAMIPIDE
     Indication: Product used for unknown indication
     Route: 048
     Dates: start: 20210329, end: 20211227
  8. CELEBREX [Concomitant]
     Active Substance: CELECOXIB
     Indication: Rheumatoid arthritis
     Dosage: CAP 200 MG
     Route: 048
     Dates: start: 20210329, end: 20211227

REACTIONS (1)
  - Interstitial lung disease [Recovering/Resolving]

NARRATIVE: CASE EVENT DATE: 20220104
